FAERS Safety Report 8992839 (Version 1)
Quarter: 2013Q1

REPORT INFORMATION
  Report Type: Spontaneous
  Country: US (occurrence: US)
  Receive Date: 20130102
  Receipt Date: 20130102
  Transmission Date: 20140127
  Serious: Yes (Hospitalization)
  Sender: FDA-Public Use
  Company Number: US-BAYER-2012-136343

PATIENT
  Age: 49 Year
  Sex: Female
  Weight: 83.9 kg

DRUGS (3)
  1. OCELLA [Suspect]
  2. YASMIN [Suspect]
  3. NAPROXEN [Concomitant]

REACTIONS (1)
  - Deep vein thrombosis [Recovered/Resolved]
